FAERS Safety Report 8449996-1 (Version None)
Quarter: 2012Q2

REPORT INFORMATION
  Report Type: 
  Country: None (occurrence: None)
  Receive Date: 20120620
  Receipt Date: 20120615
  Transmission Date: 20120825
  Serious: Yes (Death, Hospitalization)
  Sender: FDA-Public Use
  Company Number: PHHY2012MX052239

PATIENT
  Sex: Male

DRUGS (1)
  1. ZOLEDRONOC ACID [Suspect]
     Indication: OSTEOPOROSIS
     Dosage: 5MG/100 ML/YEAR
     Route: 042
     Dates: start: 20120601

REACTIONS (5)
  - LOWER LIMB FRACTURE [None]
  - DEATH [None]
  - HIP FRACTURE [None]
  - LIMB DISCOMFORT [None]
  - PNEUMONIA [None]
